FAERS Safety Report 9312590 (Version 1)
Quarter: 2013Q2

REPORT INFORMATION
  Report Type: Spontaneous
  Country: GB (occurrence: GB)
  Receive Date: 20130528
  Receipt Date: 20130528
  Transmission Date: 20140414
  Serious: Yes (Other)
  Sender: FDA-Public Use
  Company Number: GB-TEVA-407643ISR

PATIENT
  Age: 40 Year
  Sex: Male
  Weight: 69.85 kg

DRUGS (3)
  1. AMLODIPINE [Suspect]
     Indication: HYPERTENSION
     Route: 048
  2. RAMIPRIL [Suspect]
     Indication: HYPERTENSION
     Route: 048
  3. MIRTAZAPINE [Concomitant]
     Dosage: 30 MILLIGRAM DAILY; AT BEDTIME

REACTIONS (13)
  - Loss of consciousness [Recovered/Resolved]
  - Blood pressure decreased [Recovering/Resolving]
  - Unresponsive to stimuli [Recovered/Resolved]
  - Dizziness [Not Recovered/Not Resolved]
  - Vision blurred [Recovering/Resolving]
  - Dizziness [Recovering/Resolving]
  - Tremor [Not Recovered/Not Resolved]
  - Disorientation [Recovered/Resolved]
  - Pallor [Not Recovered/Not Resolved]
  - Heart rate decreased [Not Recovered/Not Resolved]
  - Respiratory rate decreased [Not Recovered/Not Resolved]
  - Glassy eyes [Not Recovered/Not Resolved]
  - Pupil fixed [Not Recovered/Not Resolved]
